FAERS Safety Report 6164161-9 (Version None)
Quarter: 2009Q2

REPORT INFORMATION
  Report Type: 
  Country: None (occurrence: None)
  Receive Date: 20090422
  Receipt Date: 20090416
  Transmission Date: 20091009
  Serious: Yes (Hospitalization)
  Sender: FDA-Public Use
  Company Number: SE-ABBOTT-09P-150-0568490-00

PATIENT
  Age: 60 Year
  Sex: Male

DRUGS (1)
  1. HUMIRA [Suspect]
     Indication: RHEUMATOID ARTHRITIS
     Route: 058
     Dates: start: 20071127, end: 20081124

REACTIONS (6)
  - ARTHRALGIA [None]
  - COUGH [None]
  - DISCOMFORT [None]
  - DYSPNOEA [None]
  - LUNG INFILTRATION [None]
  - PYREXIA [None]
